FAERS Safety Report 7241939-1 (Version None)
Quarter: 2011Q1

REPORT INFORMATION
  Report Type: 
  Country: None (occurrence: None)
  Receive Date: 20110124
  Receipt Date: 20110114
  Transmission Date: 20110831
  Serious: Yes (Other)
  Sender: FDA-Public Use
  Company Number: CA-JNJFOC-20100404131

PATIENT
  Sex: Female
  Weight: 55.4 kg

DRUGS (4)
  1. IMURAN [Concomitant]
     Route: 048
  2. REMICADE [Suspect]
     Indication: CROHN'S DISEASE
     Route: 042
  3. VITAMIN B-12 [Concomitant]
  4. CIPRALEX [Concomitant]

REACTIONS (8)
  - TONSILLAR HYPERTROPHY [None]
  - TONSILLAR HAEMORRHAGE [None]
  - CHEST DISCOMFORT [None]
  - NIGHT SWEATS [None]
  - DIZZINESS [None]
  - LYMPHADENOPATHY [None]
  - FATIGUE [None]
  - INFECTION [None]
